FAERS Safety Report 4506089-3 (Version None)
Quarter: 2004Q4

REPORT INFORMATION
  Report Type: 
  Country: None (occurrence: None)
  Receive Date: 20041025
  Receipt Date: 20040507
  Transmission Date: 20050328
  Serious: Yes (Other)
  Sender: FDA-Public Use
  Company Number: US-JNJFOC-20040501373

PATIENT
  Age: 49 Year
  Sex: Female

DRUGS (5)
  1. INFLIXIMAB (INFLIXIMAB, RECOMBINANT) LYOPHILIZED POWDER [Suspect]
     Indication: RHEUMATOID ARTHRITIS
     Dosage: INTRAVENOUS
     Route: 042
     Dates: start: 20001113, end: 20040101
  2. METHOTREXATE [Concomitant]
  3. PROPOXYPHRENE (DEXTROPROPOXYPHENE) [Concomitant]
  4. VIOXX [Concomitant]
  5. TEARS PLUS (TEARS PLUS) [Concomitant]

REACTIONS (1)
  - INFUSION RELATED REACTION [None]
